FAERS Safety Report 8309507-8 (Version None)
Quarter: 2012Q2

REPORT INFORMATION
  Report Type: 
  Country: None (occurrence: None)
  Receive Date: 20120425
  Receipt Date: 20120420
  Transmission Date: 20120825
  Serious: No
  Sender: FDA-Public Use
  Company Number: US-PFIZER INC-2012098489

PATIENT
  Sex: Female

DRUGS (2)
  1. VENLAFAXINE HCL [Suspect]
     Dosage: UNK
  2. EFFEXOR XR [Suspect]
     Dosage: 150 MG, 3X/DAY
     Dates: end: 20120420

REACTIONS (2)
  - NAUSEA [None]
  - INCORRECT DOSE ADMINISTERED [None]
